FAERS Safety Report 9531841 (Version 1)
Quarter: 2013Q3

REPORT INFORMATION
  Report Type: Spontaneous
  Country: US (occurrence: None)
  Receive Date: 20130917
  Receipt Date: 20130917
  Transmission Date: 20140515
  Serious: Yes (Life-Threatening, Hospitalization)
  Sender: FDA-Public Use
  Company Number: None

PATIENT
  Age: 42 Year
  Sex: Male
  Weight: 113 kg

DRUGS (7)
  1. IBUPROFEN [Suspect]
     Indication: PAIN
     Route: 048
  2. GEMFIBROZIL [Concomitant]
  3. HYDROCHLOROTHIAZIDE [Concomitant]
  4. ASPIRIN [Concomitant]
  5. IBUPROFEN [Concomitant]
  6. NAPROXEN [Concomitant]
  7. LISINOPRIL [Concomitant]

REACTIONS (5)
  - Cough [None]
  - Orthopnoea [None]
  - Chest pain [None]
  - Haemoglobin decreased [None]
  - Melaena [None]
